FAERS Safety Report 8723917 (Version 3)
Quarter: 2012Q4

REPORT INFORMATION
  Report Type: 
  Country: US (occurrence: US)
  Receive Date: 20120815
  Receipt Date: 20120913
  Transmission Date: 20130627
  Serious: No
  Sender: FDA-Public Use
  Company Number: US-PFIZER INC-2012197628

PATIENT
  Sex: Female
  Weight: 45.35 kg

DRUGS (3)
  1. CHANTIX [Suspect]
     Dosage: UNK
  2. CHANTIX [Suspect]
     Dosage: 1 mg, 1x/day in am
  3. PRISTIQ [Suspect]
     Dosage: UNK

REACTIONS (2)
  - Feeling of body temperature change [Unknown]
  - Postmenopause [Unknown]
